FAERS Safety Report 9096326 (Version 1)
Quarter: 2013Q1

REPORT INFORMATION
  Report Type: Spontaneous
  Country: US (occurrence: US)
  Receive Date: 20130207
  Receipt Date: 20130207
  Transmission Date: 20140127
  Serious: Yes (Other)
  Sender: FDA-Public Use
  Company Number: US-BAYER-2013-013263

PATIENT
  Sex: Female

DRUGS (7)
  1. BETASERON [Suspect]
     Dosage: 3 MG, UNK
  2. NIFEDIPINE [Concomitant]
     Dosage: 30 MG, UNK
     Route: 048
  3. PROZAC [Concomitant]
     Dosage: 40 MG, UNK
     Route: 048
  4. VITAMIN D [COLECALCIFEROL] [Concomitant]
     Route: 048
  5. CALCIOUM + D [Concomitant]
     Route: 048
  6. PRENATAL 1 [Concomitant]
  7. FENOFIBRATE [Concomitant]
     Dosage: 145 MG, UNK
     Route: 048

REACTIONS (4)
  - Influenza like illness [None]
  - Injection site reaction [None]
  - Injection site swelling [None]
  - Injection site infection [None]
